FAERS Safety Report 15040974 (Version 1)
Quarter: 2018Q2

REPORT INFORMATION
  Report Type: Spontaneous
  Country: US (occurrence: US)
  Receive Date: 20180620
  Receipt Date: 20180620
  Transmission Date: 20180711
  Serious: Yes (Hospitalization)
  Sender: FDA-Public Use
  Company Number: US-SUN PHARMACEUTICAL INDUSTRIES LTD-2018US-176064

PATIENT
  Age: 60 Year
  Sex: Male

DRUGS (1)
  1. BACLOFEN. [Suspect]
     Active Substance: BACLOFEN
     Indication: HICCUPS
     Dosage: 20 MG, TID
     Route: 065

REACTIONS (8)
  - Nausea [Recovered/Resolved]
  - Off label use [Unknown]
  - Toxicity to various agents [Recovering/Resolving]
  - Coordination abnormal [Recovering/Resolving]
  - Vomiting [Recovered/Resolved]
  - Malaise [Recovering/Resolving]
  - Muscle spasms [Recovering/Resolving]
  - Confusional state [Recovering/Resolving]
